FAERS Safety Report 5227044-4 (Version None)
Quarter: 2007Q1

REPORT INFORMATION
  Report Type: 
  Country: None (occurrence: None)
  Receive Date: 20070202
  Receipt Date: 20070124
  Transmission Date: 20070707
  Serious: No
  Sender: FDA-Public Use
  Company Number: 2005UW16784

PATIENT
  Age: 17 Year
  Sex: Female
  Weight: 78 kg

DRUGS (10)
  1. SEROQUEL [Suspect]
     Indication: SCHIZOPHRENIA
     Dosage: 800MG HS + 200MG
     Route: 048
     Dates: end: 20051004
  2. SEROQUEL [Suspect]
     Indication: SCHIZOAFFECTIVE DISORDER
     Dosage: 800MG HS + 200MG
     Route: 048
     Dates: end: 20051004
  3. DEPAKOTE [Concomitant]
  4. BENZOTROPINE [Concomitant]
  5. REMERON [Concomitant]
  6. CLOZAPINE [Concomitant]
  7. TEGRETOL [Concomitant]
  8. PERPHENAZINE [Concomitant]
  9. KLON0PIN [Concomitant]
  10. COGENTIN [Concomitant]

REACTIONS (3)
  - AGRANULOCYTOSIS [None]
  - CONSTIPATION [None]
  - WHITE BLOOD CELL COUNT DECREASED [None]
